FAERS Safety Report 8816646 (Version 1)
Quarter: 2012Q4

REPORT INFORMATION
  Report Type: Spontaneous
  Country: CA (occurrence: None)
  Receive Date: 20120928
  Receipt Date: 20120928
  Transmission Date: 20130627
  Serious: Yes (Other)
  Sender: FDA-Public Use
  Company Number: 2012-002030

PATIENT
  Age: 62 Year
  Sex: Female
  Weight: 66 kg

DRUGS (6)
  1. ACTONEL (RISEDRONATE SODIUM) TABLET, 35MG [Suspect]
     Dosage: 35 mg once weekly, Oral
     Route: 048
  2. ACTONEL (RISEDRONATE SODIUM) TABLET, 150MG [Suspect]
     Dosage: 150 mg once monthly, Oral
     Route: 048
     Dates: start: 201009, end: 20110123
  3. GLUCOSAMINE (GLUCOSAMINE) [Concomitant]
  4. INDERAL LA (PROPRANOLOL HYDROCHLORIDE) [Concomitant]
  5. MAXALT  /01406501/ (RIZATRIPTAN) [Concomitant]
  6. VITAMIN D   /00318501/ (COLECALCIFEROL) [Concomitant]

REACTIONS (4)
  - Ligament sprain [None]
  - Musculoskeletal chest pain [None]
  - Dyspnoea [None]
  - Middle insomnia [None]
